FAERS Safety Report 8078627-8 (Version None)
Quarter: 2012Q1

REPORT INFORMATION
  Report Type: 
  Country: None (occurrence: None)
  Receive Date: 20120124
  Receipt Date: 20120113
  Transmission Date: 20120608
  Serious: Yes (Other)
  Sender: FDA-Public Use
  Company Number: AUR-APL-2012-00610

PATIENT
  Age: 73 Year
  Sex: Female

DRUGS (4)
  1. NAPROXEN [Suspect]
     Indication: CHEST PAIN
     Dosage: 750 MG (250 MG, 3 IN 1 D),
  2. OMEPRAZOLE [Suspect]
     Indication: PRODUCT USED FOR UNKNOWN INDICATION
  3. DOXYCYCLINE MONOHYDRATE [Suspect]
     Indication: NASOPHARYNGITIS
  4. DICLOFENAC SODIUM [Suspect]
     Indication: PRODUCT USED FOR UNKNOWN INDICATION

REACTIONS (1)
  - SWOLLEN TONGUE [None]
